FAERS Safety Report 15796185 (Version 1)
Quarter: 2019Q1

REPORT INFORMATION
  Report Type: Spontaneous
  Country: US (occurrence: US)
  Receive Date: 20190108
  Receipt Date: 20190108
  Transmission Date: 20190417
  Serious: No
  Sender: FDA-Public Use
  Company Number: US-LUPIN PHARMACEUTICALS INC.-2018-08762

PATIENT
  Age: 24 Year
  Sex: Female

DRUGS (1)
  1. SOLOSEC [Suspect]
     Active Substance: SECNIDAZOLE
     Indication: BACTERIAL VAGINOSIS
     Dosage: 1 DF, SINGLE
     Route: 048
     Dates: start: 20181123, end: 20181123

REACTIONS (2)
  - Drug ineffective [Unknown]
  - Vaginal discharge [Not Recovered/Not Resolved]
